FAERS Safety Report 4542245-6 (Version None)
Quarter: 2004Q4

REPORT INFORMATION
  Report Type: 
  Country: None (occurrence: None)
  Receive Date: 20041227
  Receipt Date: 20041215
  Transmission Date: 20050328
  Serious: Yes (Hospitalization, Other)
  Sender: FDA-Public Use
  Company Number: 2004041522

PATIENT
  Sex: Male
  Weight: 99.7913 kg

DRUGS (7)
  1. NARDIL [Suspect]
     Indication: DEPRESSION
     Dosage: 75 MG (75 MG 1 IN 1 D, ORAL)
     Route: 048
     Dates: start: 19810101
  2. CLONAZEPAM [Suspect]
     Indication: ANXIETY
     Dosage: 4 MG (4 MG 1 IN 1 D)
  3. ASPIRIN [Concomitant]
  4. VITAMINS (VITAMINS) [Concomitant]
  5. ASCORBIC ACID [Concomitant]
  6. TOCOPHEROL CONCENTRATE CAP [Concomitant]
  7. MULTIVITAMINS (SEE IMAGE) [Concomitant]

REACTIONS (13)
  - AMNESIA [None]
  - ANORGASMIA [None]
  - CONFUSIONAL STATE [None]
  - CONSTIPATION [None]
  - DEPRESSION [None]
  - DISEASE RECURRENCE [None]
  - DRUG DEPENDENCE [None]
  - EJACULATION DISORDER [None]
  - ERECTILE DYSFUNCTION [None]
  - FOOD INTERACTION [None]
  - OBSESSIVE-COMPULSIVE DISORDER [None]
  - POST PROCEDURAL COMPLICATION [None]
  - SUICIDE ATTEMPT [None]
